FAERS Safety Report 10662328 (Version 2)
Quarter: 2014Q4

REPORT INFORMATION
  Report Type: Spontaneous
  Country: JP (occurrence: JP)
  Receive Date: 20141218
  Receipt Date: 20141218
  Transmission Date: 20150529
  Serious: Yes (Other)
  Sender: FDA-Public Use
  Company Number: US-ASTRAZENECA-2014SE94049

PATIENT
  Age: 96 Year
  Sex: Female

DRUGS (5)
  1. YOKUKAN-SAN [Concomitant]
     Active Substance: UNSPECIFIED INGREDIENT
     Dosage: 7.5 G, UNK
     Route: 048
  2. CELECOX [Concomitant]
     Active Substance: CELECOXIB
     Dosage: 2 DF, UNK
     Route: 048
  3. REMINYL [Concomitant]
     Active Substance: GALANTAMINE
     Dosage: 16 MG, UNK
     Route: 048
  4. REBAMIPIDE [Concomitant]
     Active Substance: REBAMIPIDE
     Dosage: 3 DF, UNK
     Route: 048
  5. ECARD HD [Suspect]
     Active Substance: CANDESARTAN CILEXETIL\HYDROCHLOROTHIAZIDE
     Indication: HYPERTENSION
     Route: 048
     Dates: start: 20140312, end: 201411

REACTIONS (2)
  - Hyponatraemia [Recovered/Resolved]
  - Altered state of consciousness [Recovered/Resolved]

NARRATIVE: CASE EVENT DATE: 20141107
